FAERS Safety Report 5421155-6 (Version None)
Quarter: 2007Q3

REPORT INFORMATION
  Report Type: 
  Country: None (occurrence: None)
  Receive Date: 20070821
  Receipt Date: 20070628
  Transmission Date: 20080115
  Serious: Yes (Hospitalization, Other)
  Sender: FDA-Public Use
  Company Number: US-PURDUE-USA_2007_0028502

PATIENT
  Sex: Female
  Weight: 118 kg

DRUGS (6)
  1. OXYCONTIN [Suspect]
     Indication: BACK PAIN
     Dosage: UNK, UNK
  2. XANAX [Concomitant]
  3. DILANTIN [Concomitant]
  4. KLONOPIN [Concomitant]
  5. LORTAB [Concomitant]
  6. VICODIN ES [Concomitant]

REACTIONS (30)
  - AGGRESSION [None]
  - AMNESIA [None]
  - ANGER [None]
  - ANXIETY [None]
  - ARTHRALGIA [None]
  - BACK PAIN [None]
  - BRUXISM [None]
  - CHEST PAIN [None]
  - CHILD ABUSE [None]
  - CONVULSION [None]
  - CRYING [None]
  - DEPRESSION [None]
  - DRUG ABUSER [None]
  - DRUG DEPENDENCE [None]
  - FEELING ABNORMAL [None]
  - HEADACHE [None]
  - HYPERHIDROSIS [None]
  - INSOMNIA [None]
  - INTENTIONAL OVERDOSE [None]
  - MALAISE [None]
  - MENTAL DISORDER [None]
  - MOOD SWINGS [None]
  - MUSCLE SPASMS [None]
  - PAIN [None]
  - PANIC DISORDER [None]
  - ROAD TRAFFIC ACCIDENT [None]
  - SOCIAL AVOIDANT BEHAVIOUR [None]
  - SUICIDAL IDEATION [None]
  - SUICIDE ATTEMPT [None]
  - WEIGHT INCREASED [None]
